FAERS Safety Report 23832294 (Version 1)
Quarter: 2024Q2

REPORT INFORMATION
  Report Type: Spontaneous
  Country: PT (occurrence: PT)
  Receive Date: 20240508
  Receipt Date: 20240508
  Transmission Date: 20240716
  Serious: Yes (Other)
  Sender: FDA-Public Use
  Company Number: None

PATIENT
  Age: 78 Year
  Sex: Male

DRUGS (5)
  1. PIPERACILLIN AND TAZOBACTAM [Suspect]
     Active Substance: PIPERACILLIN SODIUM\TAZOBACTAM SODIUM
     Indication: Pyrexia
     Dosage: 4500MG 3 TIMES PER DAY
     Route: 042
     Dates: start: 20240413, end: 20240416
  2. Tamsulosin [Tansulosin] [Concomitant]
     Indication: Product used for unknown indication
     Route: 048
  3. DUTASTERIDE [Concomitant]
     Active Substance: DUTASTERIDE
     Indication: Product used for unknown indication
     Route: 048
  4. Thiocolchicoside [Thiocolchicoside] [Concomitant]
     Indication: Product used for unknown indication
     Route: 048
  5. Enoxaparin  sodium [Enoxaparin sodium] [Concomitant]
     Indication: Product used for unknown indication

REACTIONS (1)
  - Drug-induced liver injury [Recovering/Resolving]

NARRATIVE: CASE EVENT DATE: 20240413
